FAERS Safety Report 9282681 (Version 2)
Quarter: 2014Q2

REPORT INFORMATION
  Report Type: Report from Study
  Country: MX (occurrence: MX)
  Receive Date: 20130510
  Receipt Date: 20140529
  Transmission Date: 20141212
  Serious: Yes (Death, Hospitalization, Other)
  Sender: FDA-Public Use
  Company Number: PHHY2013MX045324

PATIENT
  Age: 76 Year
  Sex: Male

DRUGS (2)
  1. EXELON PATCH [Suspect]
     Indication: DEMENTIA ALZHEIMER^S TYPE
     Dosage: 9.5 MG, UNK
     Route: 062
     Dates: end: 201302
  2. DRUG THERAPY NOS [Concomitant]
     Indication: CARDIAC DISORDER
     Dosage: UNK UKN, UNK

REACTIONS (4)
  - Cardiac arrest [Fatal]
  - Urinary retention [Not Recovered/Not Resolved]
  - Haemorrhage [Not Recovered/Not Resolved]
  - Anaesthetic complication [Recovered/Resolved]
